FAERS Safety Report 7490503-8 (Version None)
Quarter: 2011Q2

REPORT INFORMATION
  Report Type: 
  Country: None (occurrence: None)
  Receive Date: 20110519
  Receipt Date: 20110510
  Transmission Date: 20111010
  Serious: Yes (Other)
  Sender: FDA-Public Use
  Company Number: US-ASTRAZENECA-2010SE06150

PATIENT
  Age: 76 Year
  Sex: Female

DRUGS (2)
  1. ATACAND [Suspect]
     Route: 048
  2. NEXIUM [Suspect]
     Route: 048

REACTIONS (6)
  - DIZZINESS [None]
  - STRESS FRACTURE [None]
  - UPPER LIMB FRACTURE [None]
  - FALL [None]
  - HYPERTENSION [None]
  - HIP FRACTURE [None]
